FAERS Safety Report 19264620 (Version 1)
Quarter: 2021Q2

REPORT INFORMATION
  Report Type: Spontaneous
  Country: US (occurrence: US)
  Receive Date: 20210517
  Receipt Date: 20210517
  Transmission Date: 20210717
  Serious: Yes (Hospitalization)
  Sender: FDA-Public Use
  Company Number: None

PATIENT
  Age: 76 Year
  Sex: Male

DRUGS (9)
  1. SIMBRINZA [Concomitant]
     Active Substance: BRIMONIDINE TARTRATE\BRINZOLAMIDE
  2. PIMOZIDE. [Concomitant]
     Active Substance: PIMOZIDE
  3. LUMIGAN [Concomitant]
     Active Substance: BIMATOPROST
  4. ENBREL [Suspect]
     Active Substance: ETANERCEPT
     Indication: RHEUMATOID ARTHRITIS
     Dosage: ?          OTHER FREQUENCY:ONCE A WEEK;?
     Route: 058
     Dates: start: 20210118
  5. HYDROCHLOROTHIAZIDE. [Concomitant]
     Active Substance: HYDROCHLOROTHIAZIDE
  6. BETAXOLOL. [Concomitant]
     Active Substance: BETAXOLOL
  7. TAMSULOSIN [Concomitant]
     Active Substance: TAMSULOSIN
  8. FINASTERIDE. [Concomitant]
     Active Substance: FINASTERIDE
  9. AMLODIPINE [Concomitant]
     Active Substance: AMLODIPINE BESYLATE

REACTIONS (2)
  - Surgery [None]
  - Therapy interrupted [None]
